FAERS Safety Report 24458331 (Version 1)
Quarter: 2024Q4

REPORT INFORMATION
  Report Type: Report from Study
  Country: US (occurrence: US)
  Receive Date: 20241018
  Receipt Date: 20241018
  Transmission Date: 20250115
  Serious: No
  Sender: ROCHE
  Company Number: US-ROCHE-3525040

PATIENT
  Age: 75 Year
  Sex: Female

DRUGS (16)
  1. RITUXAN [Suspect]
     Active Substance: RITUXIMAB
     Indication: Rheumatoid arthritis
     Dosage: EVERY 6 MONTHS
     Route: 041
  2. RITUXAN [Suspect]
     Active Substance: RITUXIMAB
     Indication: Rheumatoid arthritis
  3. ACTEMRA [Suspect]
     Active Substance: TOCILIZUMAB
     Indication: Product used for unknown indication
     Route: 065
  4. MONTELUKAST [Concomitant]
     Active Substance: MONTELUKAST
  5. PLAQUENIL [Concomitant]
     Active Substance: HYDROXYCHLOROQUINE SULFATE
  6. PREDNISONE [Concomitant]
     Active Substance: PREDNISONE
  7. LIOTHYRONINE [Concomitant]
     Active Substance: LIOTHYRONINE
  8. LEVOTHYROXINE [Concomitant]
     Active Substance: LEVOTHYROXINE
  9. DEXILANT [Concomitant]
     Active Substance: DEXLANSOPRAZOLE
  10. ESTRADIOL [Concomitant]
     Active Substance: ESTRADIOL
  11. ROSUVASTATIN [Concomitant]
     Active Substance: ROSUVASTATIN
  12. IPRATROPIUM BROMIDE [Concomitant]
     Active Substance: IPRATROPIUM BROMIDE
  13. LACTULOSE [Concomitant]
     Active Substance: LACTULOSE
  14. METOPROLOL SUCCINATE [Concomitant]
     Active Substance: METOPROLOL SUCCINATE
  15. TYLENOL [Concomitant]
     Active Substance: ACETAMINOPHEN
  16. FOLATE SODIUM [Concomitant]
     Active Substance: FOLATE SODIUM

REACTIONS (12)
  - Thyroid disorder [Unknown]
  - Hypertension [Unknown]
  - Tachycardia [Unknown]
  - Constipation [Unknown]
  - Oedema peripheral [Unknown]
  - Infection [Unknown]
  - Blood chloride increased [Unknown]
  - Blood creatinine increased [Unknown]
  - Blood urea increased [Unknown]
  - Mean cell volume increased [Unknown]
  - Platelet count increased [Unknown]
  - Blood glucose decreased [Unknown]
